FAERS Safety Report 4661262-9 (Version None)
Quarter: 2005Q2

REPORT INFORMATION
  Report Type: 
  Country: None (occurrence: None)
  Receive Date: 20050513
  Receipt Date: 20050429
  Transmission Date: 20051028
  Serious: Yes (Death)
  Sender: FDA-Public Use
  Company Number: DE-JNJFOC-20050301645

PATIENT
  Age: 32 Year
  Sex: Male

DRUGS (11)
  1. RISPERDAL CONSTA [Suspect]
     Route: 030
  2. RISPERDAL CONSTA [Suspect]
     Route: 030
  3. LEPONEX [Interacting]
     Route: 049
  4. NEUROCIL [Suspect]
     Route: 049
  5. NEUROCIL [Suspect]
     Route: 049
  6. NEUROCIL [Suspect]
     Indication: DRUG USE FOR UNKNOWN INDICATION
     Route: 049
  7. RISPERDAL [Concomitant]
     Route: 049
  8. TAVOR [Concomitant]
  9. TAVOR [Concomitant]
  10. TAVOR [Concomitant]
  11. AKINETON [Concomitant]

REACTIONS (7)
  - BRAIN OEDEMA [None]
  - CARDIAC ARREST [None]
  - COMA [None]
  - DRUG INTERACTION [None]
  - HYPOXIC ENCEPHALOPATHY [None]
  - PULMONARY EMBOLISM [None]
  - RESPIRATORY ARREST [None]
